FAERS Safety Report 10363482 (Version 2)
Quarter: 2014Q3

REPORT INFORMATION
  Report Type: Report from Study
  Country: JP (occurrence: JP)
  Receive Date: 20140805
  Receipt Date: 20140912
  Transmission Date: 20150326
  Serious: Yes (Other)
  Sender: FDA-Public Use
  Company Number: JP-GLAXOSMITHKLINE-B1020538A

PATIENT
  Age: 71 Year
  Sex: Female
  Weight: 42 kg

DRUGS (8)
  1. MAGNESIUM OXIDE. [Concomitant]
     Active Substance: MAGNESIUM OXIDE
     Route: 048
  2. URSO [Concomitant]
     Active Substance: URSODIOL
     Route: 048
  3. REVOLADE [Suspect]
     Active Substance: ELTROMBOPAG
     Indication: IMMUNE THROMBOCYTOPENIC PURPURA
     Dosage: 12.5MG THREE TIMES PER WEEK
     Route: 048
     Dates: start: 20110819, end: 20111103
  4. REVOLADE [Suspect]
     Active Substance: ELTROMBOPAG
     Indication: IMMUNE THROMBOCYTOPENIC PURPURA
     Route: 048
     Dates: start: 20120127
  5. SANCOBA [Concomitant]
     Active Substance: CYANOCOBALAMIN
     Route: 031
     Dates: start: 20111104
  6. REVOLADE [Suspect]
     Active Substance: ELTROMBOPAG
     Indication: IMMUNE THROMBOCYTOPENIC PURPURA
     Dosage: 12.5MG TWO TIMES PER WEEK
     Route: 048
     Dates: start: 20111104, end: 20120126
  7. GASTER [Concomitant]
     Active Substance: FAMOTIDINE
     Indication: PROPHYLAXIS
     Route: 048
  8. PREDNISOLONE. [Concomitant]
     Active Substance: PREDNISOLONE
     Indication: IMMUNE THROMBOCYTOPENIC PURPURA
     Route: 048

REACTIONS (5)
  - Malaise [Not Recovered/Not Resolved]
  - Platelet count increased [Recovering/Resolving]
  - Dizziness [Recovering/Resolving]
  - Stomatitis [Recovering/Resolving]
  - Conjunctival haemorrhage [Recovering/Resolving]

NARRATIVE: CASE EVENT DATE: 20111007
